FAERS Safety Report 13742455 (Version 2)
Quarter: 2017Q3

REPORT INFORMATION
  Report Type: Spontaneous
  Country: JP (occurrence: JP)
  Receive Date: 20170711
  Receipt Date: 20170808
  Transmission Date: 20171127
  Serious: Yes (Hospitalization)
  Sender: FDA-Public Use
  Company Number: JP-ASTELLAS-2017US027112

PATIENT
  Age: 44 Year
  Sex: Female

DRUGS (2)
  1. TARCEVA [Suspect]
     Active Substance: ERLOTINIB HYDROCHLORIDE
     Route: 048
  2. TARCEVA [Suspect]
     Active Substance: ERLOTINIB HYDROCHLORIDE
     Indication: LUNG NEOPLASM MALIGNANT
     Dosage: 150 MG, ONCE DAILY (THE FRACTIONATION DOSE FREQUENCY IS UNCERTAIN. DOSE INTERVAL UNCERTAINTY)
     Route: 048

REACTIONS (2)
  - Gait disturbance [Recovering/Resolving]
  - Diarrhoea [Recovered/Resolved]
